FAERS Safety Report 12108976 (Version 1)
Quarter: 2016Q1

REPORT INFORMATION
  Report Type: Spontaneous
  Country: US (occurrence: None)
  Receive Date: 20160222
  Receipt Date: 20160222
  Transmission Date: 20160526
  Serious: Yes (Disabling)
  Sender: FDA-Public Use
  Company Number: None

PATIENT
  Age: 47 Year
  Sex: Male

DRUGS (7)
  1. SULFAZENE [Concomitant]
  2. LIPITOR [Concomitant]
     Active Substance: ATORVASTATIN CALCIUM
  3. C [Concomitant]
  4. D [Concomitant]
  5. FISH OIL [Concomitant]
     Active Substance: FISH OIL
  6. DEPO-MEDROL [Suspect]
     Active Substance: METHYLPREDNISOLONE ACETATE
     Indication: ANTIINFLAMMATORY THERAPY
     Dosage: INTO THE MUSCLE
     Route: 030
     Dates: start: 20160211
  7. INHALERS [Concomitant]
     Active Substance: UNSPECIFIED INGREDIENT

REACTIONS (7)
  - Dyspnoea [None]
  - Peripheral venous disease [None]
  - Chest pain [None]
  - Vein rupture [None]
  - Palpitations [None]
  - Anxiety [None]
  - Insomnia [None]

NARRATIVE: CASE EVENT DATE: 20160211
